FAERS Safety Report 23866965 (Version 4)
Quarter: 2025Q4

REPORT INFORMATION
  Report Type: Report from Study
  Country: CA (occurrence: CA)
  Receive Date: 20240517
  Receipt Date: 20251117
  Transmission Date: 20260118
  Serious: Yes (Other)
  Sender: TAKEDA
  Company Number: CA-TAKEDA-2024TUS046317

PATIENT
  Age: 46 Year
  Sex: Female

DRUGS (2)
  1. VEDOLIZUMAB [Suspect]
     Active Substance: VEDOLIZUMAB
     Indication: Colitis ulcerative
     Dosage: 300 MILLIGRAM
  2. DOXYCYCLINE [Concomitant]
     Active Substance: DOXYCYCLINE
     Dosage: UNK

REACTIONS (8)
  - Rectal haemorrhage [Unknown]
  - Frequent bowel movements [Unknown]
  - Impaired work ability [Unknown]
  - Social problem [Unknown]
  - Therapeutic reaction time decreased [Unknown]
  - Illness [Unknown]
  - Malaise [Unknown]
  - Constipation [Unknown]
